FAERS Safety Report 21528919 (Version 1)
Quarter: 2022Q4

REPORT INFORMATION
  Report Type: Spontaneous
  Country: US (occurrence: US)
  Receive Date: 20221031
  Receipt Date: 20221031
  Transmission Date: 20230113
  Serious: No
  Sender: FDA-Public Use
  Company Number: US-BRISTOL-MYERS SQUIBB COMPANY-2022-127945

PATIENT
  Age: 68 Year
  Sex: Female

DRUGS (1)
  1. REVLIMID [Suspect]
     Active Substance: LENALIDOMIDE
     Indication: Plasma cell myeloma in remission
     Dosage: TAKE 1 CAPSULE (15MG) BY MOUTH EVERY NIGHT AT BEDTIME ON DAYS 1-21 WITH 7 OFF
     Route: 048
     Dates: start: 20220113, end: 202207

REACTIONS (2)
  - Dysphagia [Unknown]
  - Off label use [Unknown]
